FAERS Safety Report 9124678 (Version 1)
Quarter: 2013Q1

REPORT INFORMATION
  Report Type: Spontaneous
  Country: AT (occurrence: AT)
  Receive Date: 20130227
  Receipt Date: 20130227
  Transmission Date: 20140127
  Serious: Yes (Hospitalization)
  Sender: FDA-Public Use
  Company Number: PHHY2013AT018740

PATIENT
  Age: 27 Year
  Sex: Male
  Weight: 72.5 kg

DRUGS (4)
  1. BIOCEF [Suspect]
     Indication: INFLUENZA LIKE ILLNESS
     Dosage: 1 DF, BID
     Route: 048
  2. NAPROXEN [Suspect]
     Indication: PAIN
     Dosage: 500 MG, BID
     Route: 048
  3. NEOCITRAN [Concomitant]
     Indication: INFLUENZA LIKE ILLNESS
  4. AMBROXOL [Concomitant]
     Indication: COUGH

REACTIONS (1)
  - Penile ulceration [Recovered/Resolved]
